FAERS Safety Report 19069073 (Version 2)
Quarter: 2022Q2

REPORT INFORMATION
  Report Type: Spontaneous
  Country: BR (occurrence: BR)
  Receive Date: 20210329
  Receipt Date: 20220404
  Transmission Date: 20220721
  Serious: Yes (Hospitalization, Other)
  Sender: FDA-Public Use
  Company Number: BR-002147023-NVSC2020BR065817

PATIENT

DRUGS (3)
  1. RUXOLITINIB [Suspect]
     Active Substance: RUXOLITINIB
     Indication: Product used for unknown indication
     Dosage: 25 MG, Q12H (12 / 12HOURS) (MORE THAN 1 YEAR)
     Route: 065
  2. RUXOLITINIB [Suspect]
     Active Substance: RUXOLITINIB
     Dosage: UNK
     Route: 065
     Dates: start: 2018
  3. RUXOLITINIB [Suspect]
     Active Substance: RUXOLITINIB
     Dosage: 20 MG, BID
     Route: 065

REACTIONS (6)
  - COVID-19 [Unknown]
  - Genital herpes [Unknown]
  - Myelofibrosis [Unknown]
  - Cholestasis [Unknown]
  - Lymphopenia [Unknown]
  - Skin cancer [Unknown]

NARRATIVE: CASE EVENT DATE: 20191001
